FAERS Safety Report 11398942 (Version 3)
Quarter: 2016Q4

REPORT INFORMATION
  Report Type: Spontaneous
  Country: US (occurrence: US)
  Receive Date: 20150820
  Receipt Date: 20161009
  Transmission Date: 20170206
  Serious: Yes (Hospitalization, Disabling, Other)
  Sender: FDA-Public Use
  Company Number: US-ENDO PHARMACEUTICALS INC.-2015-002289

PATIENT
  Age: 58 Year
  Sex: Male
  Weight: 106.69 kg

DRUGS (1)
  1. TESTIM [Suspect]
     Active Substance: TESTOSTERONE
     Indication: ANDROGEN REPLACEMENT THERAPY
     Route: 062
     Dates: start: 201308, end: 201309

REACTIONS (13)
  - Seizure [Unknown]
  - Cardiac arrest [Unknown]
  - Hypoxic-ischaemic encephalopathy [Unknown]
  - Pneumonia [Unknown]
  - Myocardial ischaemia [Unknown]
  - Pulmonary infarction [Unknown]
  - Ventricular fibrillation [Unknown]
  - Cardiomyopathy [Unknown]
  - Pulmonary embolism [Not Recovered/Not Resolved]
  - Sudden cardiac death [Not Recovered/Not Resolved]
  - Brain oedema [Unknown]
  - Myocardial infarction [Not Recovered/Not Resolved]
  - Deep vein thrombosis [Unknown]

NARRATIVE: CASE EVENT DATE: 20130926
